FAERS Safety Report 4813218-0 (Version None)
Quarter: 2005Q4

REPORT INFORMATION
  Report Type: 
  Country: None (occurrence: None)
  Receive Date: 20051028
  Receipt Date: 20050412
  Transmission Date: 20060501
  Serious: No
  Sender: FDA-Public Use
  Company Number: US-GLAXOSMITHKLINE-A0553816A

PATIENT
  Age: 70 Year
  Sex: Male

DRUGS (11)
  1. ADVAIR DISKUS 100/50 [Suspect]
     Indication: ASTHMA
     Dosage: 1PUFF TWICE PER DAY
     Route: 055
     Dates: start: 20030101
  2. ALBUTEROL [Concomitant]
     Route: 055
  3. LASIX [Concomitant]
  4. POTASSIUM [Concomitant]
  5. GLYBURIDE [Concomitant]
  6. WARFARIN [Concomitant]
  7. CLONAZEPAM [Concomitant]
  8. LISINOPRIL [Concomitant]
  9. TIAZAC [Concomitant]
  10. VITAMIN E [Concomitant]
  11. SELENIUM SULFIDE [Concomitant]

REACTIONS (1)
  - DRUG INEFFECTIVE [None]
